FAERS Safety Report 17267551 (Version 1)
Quarter: 2020Q1

REPORT INFORMATION
  Report Type: Spontaneous
  Country: US (occurrence: US)
  Receive Date: 20200114
  Receipt Date: 20200114
  Transmission Date: 20200409
  Serious: Yes (Life-Threatening, Other)
  Sender: FDA-Public Use
  Company Number: NVSC2020US006386

PATIENT
  Age: 36 Year
  Sex: Female

DRUGS (3)
  1. TREPROSTINIL. [Suspect]
     Active Substance: TREPROSTINIL
     Indication: PRODUCT USED FOR UNKNOWN INDICATION
     Dosage: 38 NG/KG/MIN
     Route: 058
  2. MACITENTAN [Suspect]
     Active Substance: MACITENTAN
     Indication: PULMONARY HYPERTENSION
     Dosage: 10 MG, UNKNOWN
     Route: 065
  3. TREPROSTINIL. [Suspect]
     Active Substance: TREPROSTINIL
     Dosage: 27 NG/KG/MIN
     Route: 058

REACTIONS (4)
  - Thrombocytopenia [Unknown]
  - Oedema peripheral [Unknown]
  - Haemoptysis [Unknown]
  - Hypoxia [Unknown]
